FAERS Safety Report 6172024-8 (Version None)
Quarter: 2009Q2

REPORT INFORMATION
  Report Type: 
  Country: None (occurrence: None)
  Receive Date: 20090429
  Receipt Date: 20090417
  Transmission Date: 20091009
  Serious: Yes (Hospitalization)
  Sender: FDA-Public Use
  Company Number: FR-PFIZER INC-2008083577

PATIENT

DRUGS (5)
  1. SALAZOPYRINE [Suspect]
     Indication: RHEUMATOID ARTHRITIS
     Dosage: UNK
     Route: 048
     Dates: start: 20060501, end: 20060501
  2. SALAZOPYRINE [Suspect]
     Dosage: UNK
     Route: 048
     Dates: start: 20060501, end: 20060501
  3. SALAZOPYRINE [Suspect]
     Dosage: 1X/DAY
     Route: 048
     Dates: start: 20060501, end: 20060501
  4. CACIT D3 [Concomitant]
     Indication: OSTEOPOROSIS
     Dosage: UNK
     Dates: start: 20060401
  5. ACTONEL [Concomitant]
     Indication: OSTEOPOROSIS
     Dosage: UNK
     Dates: start: 20040101

REACTIONS (10)
  - CYTOLYTIC HEPATITIS [None]
  - DRUG RASH WITH EOSINOPHILIA AND SYSTEMIC SYMPTOMS [None]
  - ERYTHEMA NODOSUM [None]
  - HEPATITIS CHOLESTATIC [None]
  - INFLAMMATION [None]
  - PYREXIA [None]
  - RASH ERYTHEMATOUS [None]
  - RASH MACULAR [None]
  - RENAL FAILURE [None]
  - VASCULITIS [None]
